FAERS Safety Report 18237756 (Version 1)
Quarter: 2020Q3

REPORT INFORMATION
  Report Type: Spontaneous
  Country: ES (occurrence: ES)
  Receive Date: 20200907
  Receipt Date: 20200907
  Transmission Date: 20201103
  Serious: Yes (Hospitalization)
  Sender: FDA-Public Use
  Company Number: NVSC2020ES242348

PATIENT
  Age: 70 Year
  Sex: Female
  Weight: 52 kg

DRUGS (8)
  1. ENALAPRIL [Interacting]
     Active Substance: ENALAPRIL
     Indication: HYPERTENSION
     Dosage: 10 MG, BID
     Route: 048
     Dates: start: 20191203, end: 20200825
  2. AMLODIPINE [Concomitant]
     Active Substance: AMLODIPINE BESYLATE
     Indication: PRODUCT USED FOR UNKNOWN INDICATION
     Dosage: 1 DF, UNKNOWN
     Route: 065
  3. OMEPRAZOLE. [Concomitant]
     Active Substance: OMEPRAZOLE
     Indication: PRODUCT USED FOR UNKNOWN INDICATION
     Dosage: UNK
     Route: 065
  4. CERTICAN [Suspect]
     Active Substance: EVEROLIMUS
     Indication: SOLID ORGAN TRANSPLANT
     Dosage: 0.75 MG, QD
     Route: 048
     Dates: start: 20191216
  5. ATORVASTATIN [Concomitant]
     Active Substance: ATORVASTATIN
     Indication: PRODUCT USED FOR UNKNOWN INDICATION
     Dosage: UNK
     Route: 065
  6. SEGURIL [Concomitant]
     Active Substance: FUROSEMIDE
     Indication: PRODUCT USED FOR UNKNOWN INDICATION
     Dosage: UNK
     Route: 065
  7. MAGNOGENE [Concomitant]
     Indication: PRODUCT USED FOR UNKNOWN INDICATION
     Dosage: UNK
     Route: 065
  8. ADVAGRAF [Concomitant]
     Active Substance: TACROLIMUS
     Indication: PRODUCT USED FOR UNKNOWN INDICATION
     Dosage: 3 MG, UNKNOWN
     Route: 065

REACTIONS (1)
  - Laryngeal oedema [Unknown]

NARRATIVE: CASE EVENT DATE: 20200825
